FAERS Safety Report 11237156 (Version 1)
Quarter: 2015Q3

REPORT INFORMATION
  Report Type: Spontaneous
  Country: US (occurrence: US)
  Receive Date: 20150703
  Receipt Date: 20150703
  Transmission Date: 20151125
  Serious: No
  Sender: FDA-Public Use
  Company Number: US-BRISTOL-MYERS SQUIBB COMPANY-BMS-2015-043542

PATIENT
  Age: 50 Year
  Sex: Female

DRUGS (2)
  1. WARFARIN SODIUM. [Suspect]
     Active Substance: WARFARIN SODIUM
     Indication: EMBOLISM VENOUS
     Route: 065
  2. ELIQUIS [Suspect]
     Active Substance: APIXABAN
     Indication: THROMBOSIS PROPHYLAXIS
     Route: 065

REACTIONS (1)
  - Haemorrhage [Unknown]
